FAERS Safety Report 14759402 (Version 1)
Quarter: 2018Q2

REPORT INFORMATION
  Report Type: Spontaneous
  Country: GB (occurrence: GB)
  Receive Date: 20180413
  Receipt Date: 20180413
  Transmission Date: 20180711
  Serious: Yes (Death, Hospitalization)
  Sender: FDA-Public Use
  Company Number: GB-PERRIGO-18GB003997

PATIENT

DRUGS (11)
  1. XARELTO [Suspect]
     Active Substance: RIVAROXABAN
     Indication: PRODUCT USED FOR UNKNOWN INDICATION
     Dosage: 20 MG, QD
     Route: 048
  2. TIOTROPIUM BROMIDE [Concomitant]
     Active Substance: TIOTROPIUM BROMIDE
     Indication: PRODUCT USED FOR UNKNOWN INDICATION
  3. LANSOPRAZOLE. [Concomitant]
     Active Substance: LANSOPRAZOLE
     Indication: PRODUCT USED FOR UNKNOWN INDICATION
  4. SPIRONOLACTONE. [Concomitant]
     Active Substance: SPIRONOLACTONE
     Indication: PRODUCT USED FOR UNKNOWN INDICATION
     Dosage: MORNING
     Route: 048
  5. SALBUTAMOL [Concomitant]
     Active Substance: ALBUTEROL
     Indication: PRODUCT USED FOR UNKNOWN INDICATION
  6. IBUPROFEN. [Suspect]
     Active Substance: IBUPROFEN
     Indication: PRODUCT USED FOR UNKNOWN INDICATION
     Dosage: 200 MG, UNK
     Route: 048
  7. BISOPROLOL [Suspect]
     Active Substance: BISOPROLOL
     Indication: PRODUCT USED FOR UNKNOWN INDICATION
     Dosage: 2.5 MG, QD
     Route: 048
  8. DIGOXIN. [Suspect]
     Active Substance: DIGOXIN
     Indication: PRODUCT USED FOR UNKNOWN INDICATION
     Dosage: 125 ?G, QD
     Route: 048
  9. BUMETANIDE. [Concomitant]
     Active Substance: BUMETANIDE
     Indication: PRODUCT USED FOR UNKNOWN INDICATION
     Dosage: MORNING
     Route: 048
  10. THIAMINE. [Concomitant]
     Active Substance: THIAMINE
     Indication: PRODUCT USED FOR UNKNOWN INDICATION
  11. FERROUS FUMARATE [Concomitant]
     Active Substance: FERROUS FUMARATE
     Indication: PRODUCT USED FOR UNKNOWN INDICATION

REACTIONS (7)
  - Toxicity to various agents [Fatal]
  - Bradycardia [Fatal]
  - Acute kidney injury [Fatal]
  - Cardiac failure [Fatal]
  - Atrioventricular block [Fatal]
  - Platelet count decreased [Fatal]
  - Atrial fibrillation [Not Recovered/Not Resolved]
